FAERS Safety Report 4990674-9 (Version None)
Quarter: 2006Q2

REPORT INFORMATION
  Report Type: 
  Country: None (occurrence: None)
  Receive Date: 20060427
  Receipt Date: 20060418
  Transmission Date: 20061013
  Serious: Yes (Other)
  Sender: FDA-Public Use
  Company Number: HQWYE866319APR06

PATIENT
  Age: 31 Year
  Sex: Male

DRUGS (1)
  1. INDERAL LA [Suspect]
     Indication: HYPERTENSION
     Dosage: INCREASED OVER TIME; CURRENTLY TAKING INDERAL LA 160 MG DAILY, ORAL; APPROXIMATELY 4 YEARS IN TOTAL
     Route: 048

REACTIONS (4)
  - DRUG DEPENDENCE [None]
  - HEART RATE INCREASED [None]
  - MYALGIA [None]
  - TREMOR [None]
